FAERS Safety Report 17679971 (Version 1)
Quarter: 2020Q2

REPORT INFORMATION
  Report Type: Spontaneous
  Country: US (occurrence: US)
  Receive Date: 20200416
  Receipt Date: 20200416
  Transmission Date: 20200714
  Serious: Yes (Other)
  Sender: FDA-Public Use
  Company Number: None

PATIENT
  Age: 37 Year
  Sex: Female
  Weight: 63.5 kg

DRUGS (1)
  1. RIASTAP [Suspect]
     Active Substance: FIBRINOGEN HUMAN
     Indication: POSTPARTUM HAEMORRHAGE
     Dosage: ?          OTHER FREQUENCY:ONCE;?
     Route: 042
     Dates: start: 20200408, end: 20200408

REACTIONS (3)
  - Physical product label issue [None]
  - Product packaging issue [None]
  - Product solubility abnormal [None]

NARRATIVE: CASE EVENT DATE: 20200408
